FAERS Safety Report 4825825-X (Version None)
Quarter: 2005Q4

REPORT INFORMATION
  Report Type: 
  Country: None (occurrence: None)
  Receive Date: 20051111
  Receipt Date: 20051102
  Transmission Date: 20060501
  Serious: Yes (Death, Hospitalization)
  Sender: FDA-Public Use
  Company Number: NSADSS2002011079

PATIENT
  Age: 71 Year
  Sex: Male

DRUGS (4)
  1. REMICADE [Suspect]
     Route: 041
  2. REMICADE [Suspect]
     Route: 041
  3. CORTICOSTEROIDS [Concomitant]
  4. METHOTREXATE [Concomitant]

REACTIONS (2)
  - ENCEPHALITIS [None]
  - LISTERIOSIS [None]
